FAERS Safety Report 15854338 (Version 1)
Quarter: 2019Q1

REPORT INFORMATION
  Report Type: Spontaneous
  Country: DE (occurrence: DE)
  Receive Date: 20190122
  Receipt Date: 20190122
  Transmission Date: 20190417
  Serious: Yes (Other)
  Sender: FDA-Public Use
  Company Number: DE-PFIZER INC-2019022489

PATIENT
  Sex: Male

DRUGS (3)
  1. SERTRALINE HCL [Suspect]
     Active Substance: SERTRALINE HYDROCHLORIDE
     Dosage: 25 MG, UNK
     Dates: end: 20181221
  2. XADAGO [Interacting]
     Active Substance: SAFINAMIDE MESYLATE
     Dosage: 100 MG, UNK
     Dates: end: 20181220
  3. XADAGO [Interacting]
     Active Substance: SAFINAMIDE MESYLATE
     Dosage: 50 MG, UNK
     Dates: start: 20181221

REACTIONS (2)
  - Drug interaction [Unknown]
  - Serotonin syndrome [Unknown]
